FAERS Safety Report 10351371 (Version 2)
Quarter: 2014Q3

REPORT INFORMATION
  Report Type: Spontaneous
  Country: FR (occurrence: FR)
  Receive Date: 20140730
  Receipt Date: 20140807
  Transmission Date: 20150326
  Serious: Yes (Hospitalization, Other)
  Sender: FDA-Public Use
  Company Number: FR-PFIZER INC-2014207696

PATIENT
  Age: 73 Year
  Sex: Male

DRUGS (5)
  1. OXYNORMORO [Suspect]
     Active Substance: OXYCODONE
     Indication: PROCEDURAL PAIN
     Dosage: 5 MG, 6X/DAY
     Route: 048
     Dates: start: 20140708, end: 20140710
  2. LYRICA [Suspect]
     Active Substance: PREGABALIN
     Indication: NEURALGIA
     Dosage: 100 MG (2 CAPSULES OF 50 MG), 1X/DAY
     Route: 048
     Dates: start: 201407, end: 20140710
  3. ZOPHREN [Suspect]
     Active Substance: ONDANSETRON
     Indication: VOMITING
     Dosage: 8 MG, 1X/DAY
     Route: 048
     Dates: start: 20140709, end: 20140710
  4. LAROXYL ROCHE [Suspect]
     Active Substance: AMITRIPTYLINE
     Indication: NEURALGIA
     Dosage: 22 GTT, DAILY
     Route: 048
     Dates: start: 20140709, end: 20140710
  5. MORPHINE SULFATE. [Suspect]
     Active Substance: MORPHINE SULFATE
     Dosage: UNK
     Dates: end: 20140708

REACTIONS (6)
  - Postictal state [Unknown]
  - Loss of consciousness [Recovered/Resolved]
  - Dyskinesia [Unknown]
  - Confusional state [Recovered/Resolved]
  - Hallucination, visual [Recovered/Resolved]
  - Myoclonus [Recovered/Resolved]

NARRATIVE: CASE EVENT DATE: 20140709
